FAERS Safety Report 8116973-X (Version None)
Quarter: 2012Q1

REPORT INFORMATION
  Report Type: 
  Country: None (occurrence: None)
  Receive Date: 20120206
  Receipt Date: 20120131
  Transmission Date: 20120608
  Serious: Yes (Life-Threatening, Other)
  Sender: FDA-Public Use
  Company Number: DE-ROCHE-1035568

PATIENT
  Sex: Female
  Weight: 65 kg

DRUGS (3)
  1. BONIVA [Suspect]
     Indication: OSTEOPOROSIS
     Route: 042
  2. FORMATRIS [Concomitant]
     Indication: ASTHMA
  3. IBUPROFEN [Concomitant]
     Indication: HEADACHE
     Route: 048

REACTIONS (2)
  - ASTHMA [None]
  - HAEMORRHOIDAL HAEMORRHAGE [None]
